FAERS Safety Report 8341654-7 (Version None)
Quarter: 2012Q2

REPORT INFORMATION
  Report Type: 
  Country: None (occurrence: None)
  Receive Date: 20120507
  Receipt Date: 20120501
  Transmission Date: 20120825
  Serious: Yes (Other)
  Sender: FDA-Public Use
  Company Number: DK-PFIZER INC-2012108828

PATIENT
  Age: 26 Year
  Sex: Male

DRUGS (7)
  1. ETOPOSIDE [Suspect]
     Indication: DIFFUSE LARGE B-CELL LYMPHOMA STAGE IV
     Dosage: UNK, 2-WEEK INTERVAL
     Route: 065
     Dates: start: 20080101, end: 20080501
  2. PREDNISONE [Suspect]
     Indication: DIFFUSE LARGE B-CELL LYMPHOMA STAGE IV
     Dosage: UNK, 2-WEEK INTERVAL
     Route: 065
     Dates: start: 20080101, end: 20080501
  3. RITUXIMAB [Suspect]
     Indication: DIFFUSE LARGE B-CELL LYMPHOMA STAGE IV
     Dosage: UNK, 2-WEEK INTERVAL
     Route: 065
     Dates: start: 20080101, end: 20080501
  4. CYCLOPHOSPHAMIDE [Suspect]
     Indication: DIFFUSE LARGE B-CELL LYMPHOMA STAGE IV
     Dosage: UNK, 2-WEEK INTERVAL
     Route: 065
     Dates: start: 20080101, end: 20080501
  5. DOXORUBICIN HCL [Suspect]
     Indication: DIFFUSE LARGE B-CELL LYMPHOMA STAGE IV
     Dosage: UNK, 2-WEEK INTERVAL
     Route: 065
     Dates: start: 20080101, end: 20080501
  6. VINCRISTINE [Suspect]
     Indication: DIFFUSE LARGE B-CELL LYMPHOMA STAGE IV
     Dosage: UNK, 2-WEEK INTERVAL
     Route: 065
     Dates: start: 20080101, end: 20080501
  7. LAMIVUDINE [Concomitant]
     Indication: PROPHYLAXIS
     Dosage: 100 MG DAILY

REACTIONS (1)
  - HEPATITIS D [None]
